FAERS Safety Report 17459114 (Version 4)
Quarter: 2020Q2

REPORT INFORMATION
  Report Type: Report from Study
  Country: US (occurrence: US)
  Receive Date: 20200225
  Receipt Date: 20200429
  Transmission Date: 20200713
  Serious: Yes (Congenital Anomaly)
  Sender: FDA-Public Use
  Company Number: US-GILEAD-2020-0452194

PATIENT
  Sex: Male
  Weight: 3.06 kg

DRUGS (1)
  1. BICTEGRAVIR W/EMTRICITABINE/TENOFOVIR ALAFENAMIDE [Suspect]
     Active Substance: BICTEGRAVIR\EMTRICITABINE\TENOFOVIR ALAFENAMIDE
     Indication: HIV INFECTION
     Dosage: 1 DOSAGE FORM, QD
     Route: 064
     Dates: start: 20190815, end: 20200219

REACTIONS (3)
  - Foetal exposure during pregnancy [Recovered/Resolved]
  - CFTR gene mutation [Unknown]
  - Cardiomegaly [Recovered/Resolved]

NARRATIVE: CASE EVENT DATE: 20190815
